FAERS Safety Report 21780575 (Version 1)
Quarter: 2022Q4

REPORT INFORMATION
  Report Type: Spontaneous
  Country: GB (occurrence: GB)
  Receive Date: 20221227
  Receipt Date: 20221227
  Transmission Date: 20230112
  Serious: Yes (Hospitalization, Other)
  Sender: FDA-Public Use
  Company Number: GB-AMGEN-GBRSP2022223487

PATIENT
  Age: 60 Year
  Sex: Male
  Weight: 88 kg

DRUGS (7)
  1. OTEZLA [Suspect]
     Active Substance: APREMILAST
     Indication: Psoriasis
     Dosage: 30 MILLIGRAM, BID
     Route: 065
     Dates: start: 20210131
  2. CANDESARTAN [Concomitant]
     Active Substance: CANDESARTAN
     Dosage: UNK
     Dates: start: 20130614
  3. LATANOPROST [Concomitant]
     Active Substance: LATANOPROST
     Dosage: UNK
     Dates: start: 20161027
  4. COTRIMOXAZOLE [Concomitant]
     Active Substance: SULFAMETHOXAZOLE\TRIMETHOPRIM
     Dosage: UNK
     Dates: start: 20220601, end: 20220606
  5. METRONIDAZOLE [Concomitant]
     Active Substance: METRONIDAZOLE
     Dosage: UNK
     Dates: start: 20220601, end: 20220606
  6. ACETAMINOPHEN [Concomitant]
     Active Substance: ACETAMINOPHEN
     Dosage: UNK
     Dates: start: 20220602
  7. DIHYDROCODEINE [Concomitant]
     Active Substance: DIHYDROCODEINE
     Dosage: UNK
     Dates: start: 20220602, end: 20220606

REACTIONS (1)
  - Diverticular perforation [Not Recovered/Not Resolved]

NARRATIVE: CASE EVENT DATE: 20220526
